FAERS Safety Report 7741937-5 (Version None)
Quarter: 2011Q3

REPORT INFORMATION
  Report Type: 
  Country: None (occurrence: None)
  Receive Date: 20110912
  Receipt Date: 20110902
  Transmission Date: 20111222
  Serious: Yes (Hospitalization, Other)
  Sender: FDA-Public Use
  Company Number: GR-JNJFOC-20110901164

PATIENT
  Sex: Male
  Weight: 97 kg

DRUGS (10)
  1. DOXORUBICIN HCL [Suspect]
     Route: 042
     Dates: start: 20110612, end: 20110612
  2. DOXORUBICIN HCL [Suspect]
     Route: 042
     Dates: start: 20110506, end: 20110520
  3. VELCADE [Suspect]
     Indication: MULTIPLE MYELOMA
     Route: 042
     Dates: start: 20110612
  4. DEXAMETHASONE [Concomitant]
     Indication: MULTIPLE MYELOMA
     Route: 042
     Dates: start: 20110727, end: 20110815
  5. DOXORUBICIN HCL [Suspect]
     Indication: MULTIPLE MYELOMA
     Route: 042
     Dates: start: 20110726
  6. DEXAMETHASONE [Concomitant]
     Route: 042
     Dates: start: 20110506, end: 20110519
  7. VELCADE [Suspect]
     Dosage: ON DAY 1, 4, 8 AND 11
     Route: 042
     Dates: start: 20110506, end: 20110520
  8. VELCADE [Suspect]
     Route: 042
     Dates: start: 20110726
  9. DEXAMETHASONE [Concomitant]
     Route: 042
     Dates: start: 20110612, end: 20110703
  10. DEXAMETHASONE [Concomitant]
     Route: 042
     Dates: start: 20110704, end: 20110725

REACTIONS (6)
  - PYREXIA [None]
  - HYPOXIA [None]
  - UPPER RESPIRATORY TRACT INFECTION [None]
  - BLOOD CREATININE INCREASED [None]
  - LOWER RESPIRATORY TRACT INFECTION [None]
  - URINE OUTPUT DECREASED [None]
